FAERS Safety Report 25413278 (Version 2)
Quarter: 2025Q2

REPORT INFORMATION
  Report Type: Spontaneous
  Country: ES (occurrence: ES)
  Receive Date: 20250609
  Receipt Date: 20250613
  Transmission Date: 20250716
  Serious: Yes (Hospitalization, Other)
  Sender: MYLAN
  Company Number: None

PATIENT
  Age: 5 Year
  Sex: Female

DRUGS (12)
  1. FENTANYL [Suspect]
     Active Substance: FENTANYL
     Indication: Sedative therapy
     Dates: start: 20250509, end: 20250509
  2. FENTANYL [Suspect]
     Active Substance: FENTANYL
     Route: 065
     Dates: start: 20250509, end: 20250509
  3. FENTANYL [Suspect]
     Active Substance: FENTANYL
     Route: 065
     Dates: start: 20250509, end: 20250509
  4. FENTANYL [Suspect]
     Active Substance: FENTANYL
     Dates: start: 20250509, end: 20250509
  5. FLUMAZENIL [Concomitant]
     Active Substance: FLUMAZENIL
     Indication: Anaesthesia reversal
  6. FLUMAZENIL [Concomitant]
     Active Substance: FLUMAZENIL
     Route: 065
  7. FLUMAZENIL [Concomitant]
     Active Substance: FLUMAZENIL
     Route: 065
  8. FLUMAZENIL [Concomitant]
     Active Substance: FLUMAZENIL
  9. Naloxona [Concomitant]
     Indication: Anaesthesia reversal
  10. Naloxona [Concomitant]
     Route: 065
  11. Naloxona [Concomitant]
     Route: 065
  12. Naloxona [Concomitant]

REACTIONS (2)
  - Chest wall rigidity [Recovered/Resolved]
  - Medication error [Recovered/Resolved]

NARRATIVE: CASE EVENT DATE: 20250509
